FAERS Safety Report 4459485-7 (Version None)
Quarter: 2004Q3

REPORT INFORMATION
  Report Type: 
  Country: None (occurrence: None)
  Receive Date: 20040910
  Receipt Date: 20040518
  Transmission Date: 20050211
  Serious: Yes (Hospitalization, Other)
  Sender: FDA-Public Use
  Company Number: 2004204730US

PATIENT
  Age: 82 Year
  Sex: Female
  Weight: 54.4 kg

DRUGS (1)
  1. BEXTRA [Suspect]
     Indication: ARTHRITIS
     Dosage: 10 MG, QD
     Dates: start: 20021024

REACTIONS (1)
  - GASTROINTESTINAL HAEMORRHAGE [None]
